FAERS Safety Report 7410234-X (Version None)
Quarter: 2011Q2

REPORT INFORMATION
  Report Type: 
  Country: None (occurrence: None)
  Receive Date: 20110412
  Receipt Date: 20110301
  Transmission Date: 20111010
  Serious: Yes (Other)
  Sender: FDA-Public Use
  Company Number: US-BAXTER-2010BH017674

PATIENT
  Age: 42 Year
  Sex: Female
  Weight: 73 kg

DRUGS (9)
  1. LORCET-HD [Concomitant]
     Indication: PAIN
     Route: 048
  2. NEURONTIN [Concomitant]
     Indication: PRODUCT USED FOR UNKNOWN INDICATION
     Route: 048
  3. PHENERGAN HCL [Suspect]
     Route: 042
     Dates: start: 20080813, end: 20080813
  4. BISOPROLOL FUMARATE AND HYDROCHLOROTHIAZIDE [Concomitant]
     Indication: PRODUCT USED FOR UNKNOWN INDICATION
     Route: 048
  5. PHENERGAN HCL [Suspect]
     Indication: PRODUCT USED FOR UNKNOWN INDICATION
     Route: 042
     Dates: start: 20080723, end: 20080723
  6. PHENERGAN HCL [Concomitant]
     Indication: NAUSEA
     Route: 048
  7. CLONAZEPAM [Concomitant]
     Indication: PRODUCT USED FOR UNKNOWN INDICATION
     Route: 048
  8. CYMBALTA [Concomitant]
     Indication: PRODUCT USED FOR UNKNOWN INDICATION
     Route: 048
  9. ZANAFLEX [Concomitant]
     Indication: PRODUCT USED FOR UNKNOWN INDICATION
     Route: 048

REACTIONS (13)
  - VOMITING [None]
  - CYANOSIS [None]
  - HEADACHE [None]
  - RAYNAUD'S PHENOMENON [None]
  - CARPAL TUNNEL SYNDROME [None]
  - BURNING SENSATION [None]
  - DRY GANGRENE [None]
  - ISCHAEMIA [None]
  - EXTREMITY NECROSIS [None]
  - INCORRECT ROUTE OF DRUG ADMINISTRATION [None]
  - SENSORY LOSS [None]
  - ECCHYMOSIS [None]
  - PAIN [None]
